FAERS Safety Report 17750968 (Version 1)
Quarter: 2020Q2

REPORT INFORMATION
  Report Type: Spontaneous
  Country: FR (occurrence: FR)
  Receive Date: 20200506
  Receipt Date: 20200506
  Transmission Date: 20200714
  Serious: Yes (Hospitalization)
  Sender: FDA-Public Use
  Company Number: NVSC2020FR120597

PATIENT
  Age: 15 Year
  Sex: Female
  Weight: 70 kg

DRUGS (3)
  1. DESLORATADINE. [Suspect]
     Active Substance: DESLORATADINE
     Indication: TOXICITY TO VARIOUS AGENTS
     Dosage: 15 DF
     Route: 048
     Dates: start: 20200118, end: 20200118
  2. PARACETAMOL [Suspect]
     Active Substance: ACETAMINOPHEN
     Indication: TOXICITY TO VARIOUS AGENTS
     Dosage: 14 G
     Route: 048
     Dates: start: 20200118, end: 20200118
  3. IXPRIM [Suspect]
     Active Substance: ACETAMINOPHEN\TRAMADOL HYDROCHLORIDE
     Indication: TOXICITY TO VARIOUS AGENTS
     Dosage: 8 DF
     Route: 048
     Dates: start: 20200118, end: 20200118

REACTIONS (2)
  - Analgesic drug level increased [Recovered/Resolved]
  - Somnolence [Recovered/Resolved]

NARRATIVE: CASE EVENT DATE: 20200118
